APPROVED DRUG PRODUCT: COLESTIPOL HYDROCHLORIDE
Active Ingredient: COLESTIPOL HYDROCHLORIDE
Strength: 1GM
Dosage Form/Route: TABLET;ORAL
Application: A215223 | Product #001 | TE Code: AB
Applicant: ZYDUS PHARMACEUTICALS USA INC
Approved: Mar 10, 2022 | RLD: No | RS: No | Type: RX